FAERS Safety Report 25812070 (Version 1)
Quarter: 2025Q3

REPORT INFORMATION
  Report Type: Spontaneous
  Country: CN (occurrence: CN)
  Receive Date: 20250917
  Receipt Date: 20250917
  Transmission Date: 20251021
  Serious: Yes (Other)
  Sender: SANOFI AVENTIS
  Company Number: CN-SA-2025SA276218

PATIENT
  Age: 67 Year
  Sex: Male

DRUGS (2)
  1. HYDROCHLOROTHIAZIDE\IRBESARTAN [Suspect]
     Active Substance: HYDROCHLOROTHIAZIDE\IRBESARTAN
     Indication: Dilated cardiomyopathy
     Dosage: 1 DF, QD
     Route: 048
     Dates: start: 20210901, end: 20210923
  2. TORSEMIDE [Concomitant]
     Active Substance: TORSEMIDE
     Indication: Dilated cardiomyopathy
     Dosage: 1 DF, QD
     Route: 048
     Dates: start: 20200903, end: 20210923

REACTIONS (9)
  - Brain oedema [Unknown]
  - Arrhythmia [Unknown]
  - Abdominal distension [Unknown]
  - Decreased appetite [Recovering/Resolving]
  - Headache [Recovering/Resolving]
  - Tachycardia [Recovering/Resolving]
  - Dizziness [Unknown]
  - Diarrhoea [Unknown]
  - Dyspepsia [Unknown]

NARRATIVE: CASE EVENT DATE: 20210924
